FAERS Safety Report 8841282 (Version 2)
Quarter: 2012Q4

REPORT INFORMATION
  Report Type: 
  Country: FI (occurrence: FI)
  Receive Date: 20121016
  Receipt Date: 20121023
  Transmission Date: 20130627
  Serious: Yes (Hospitalization, Other)
  Sender: FDA-Public Use
  Company Number: FI-AMGEN-FINSP2012064796

PATIENT
  Age: 64 Year
  Sex: Male

DRUGS (10)
  1. NPLATE [Suspect]
     Indication: IDIOPATHIC THROMBOCYTOPENIC PURPURA
     Dosage: 250 mug, qwk
     Dates: start: 2010
  2. MAREVAN [Concomitant]
  3. SOMAC [Concomitant]
  4. ASPIRIN CARDIO [Concomitant]
     Dosage: 100 mg, UNK
  5. EMCONCOR [Concomitant]
     Dosage: 2.5 mg, UNK
  6. EZETROL [Concomitant]
     Dosage: 10 mg, UNK
  7. PREDNISOLON                        /00016201/ [Concomitant]
     Dosage: 2.5 mg, UNK
  8. DINIT [Concomitant]
     Dosage: UNK UNK, prn
  9. KALCIPOS-D [Concomitant]
     Dosage: UNK UNK, bid
  10. ERDOPECT [Concomitant]
     Dosage: UNK UNK, prn

REACTIONS (6)
  - Transient ischaemic attack [Recovered/Resolved]
  - Therapeutic response decreased [Unknown]
  - Visual impairment [Unknown]
  - Platelet count abnormal [Unknown]
  - Thrombotic thrombocytopenic purpura [Unknown]
  - Respiratory tract infection [Recovering/Resolving]
